FAERS Safety Report 13426786 (Version 1)
Quarter: 2017Q2

REPORT INFORMATION
  Report Type: Spontaneous
  Country: US (occurrence: US)
  Receive Date: 20170411
  Receipt Date: 20170411
  Transmission Date: 20170830
  Serious: No
  Sender: FDA-Public Use
  Company Number: None

PATIENT
  Sex: Female

DRUGS (1)
  1. JANUMET [Suspect]
     Active Substance: METFORMIN HYDROCHLORIDE\SITAGLIPTIN PHOSPHATE

REACTIONS (4)
  - Product colour issue [None]
  - Hypoglycaemia [None]
  - Drug dispensing error [None]
  - Wrong drug administered [None]

NARRATIVE: CASE EVENT DATE: 2017
